FAERS Safety Report 12848665 (Version 1)
Quarter: 2016Q4

REPORT INFORMATION
  Report Type: Spontaneous
  Country: US (occurrence: US)
  Receive Date: 20161014
  Receipt Date: 20161014
  Transmission Date: 20170207
  Serious: No
  Sender: FDA-Public Use
  Company Number: US-JNJFOC-20160827162

PATIENT
  Sex: Male
  Weight: 13.61 kg

DRUGS (1)
  1. CHILDRENS TYLENOL [Suspect]
     Active Substance: ACETAMINOPHEN
     Indication: MULTIPLE ALLERGIES
     Route: 048

REACTIONS (1)
  - Wrong drug administered [Unknown]
